FAERS Safety Report 5568245-5 (Version None)
Quarter: 2007Q4

REPORT INFORMATION
  Report Type: 
  Country: None (occurrence: None)
  Receive Date: 20071220
  Receipt Date: 20071120
  Transmission Date: 20080405
  Serious: No
  Sender: FDA-Public Use
  Company Number: US-BAYER-200714812NA

PATIENT
  Age: 89 Year
  Sex: Male
  Weight: 64 kg

DRUGS (3)
  1. BETAPACE [Suspect]
     Indication: VENTRICULAR ARRHYTHMIA
     Dosage: TOTAL DAILY DOSE: 160 MG
     Route: 048
     Dates: start: 20040101
  2. ACE (R) INHIBITOR [Concomitant]
  3. LIPITOR [Concomitant]

REACTIONS (2)
  - EPISTAXIS [None]
  - FATIGUE [None]
